FAERS Safety Report 10090597 (Version 2)
Quarter: 2014Q2

REPORT INFORMATION
  Report Type: Spontaneous
  Country: US (occurrence: US)
  Receive Date: 20140421
  Receipt Date: 20140509
  Transmission Date: 20141212
  Serious: Yes (Hospitalization)
  Sender: FDA-Public Use
  Company Number: US-BAYER-2014-056955

PATIENT
  Age: 30 Year
  Sex: Female
  Weight: 144.67 kg

DRUGS (7)
  1. YASMIN [Suspect]
  2. ALBUTEROL [Concomitant]
  3. AMLODIPINE [Concomitant]
  4. LORAZEPAM [Concomitant]
  5. CYCLOBENZAPRINE [Concomitant]
     Dosage: 10 MG, UNK
     Route: 048
     Dates: start: 20100816, end: 20130304
  6. BENZONATATE [Concomitant]
     Dosage: 100 MG, UNK
     Route: 048
     Dates: start: 20111109
  7. GUAIFENESIN/CODEINE [Concomitant]
     Dosage: UNK
     Route: 048
     Dates: start: 20111109

REACTIONS (2)
  - Pulmonary embolism [None]
  - Deep vein thrombosis [None]
